FAERS Safety Report 16452040 (Version 1)
Quarter: 2019Q2

REPORT INFORMATION
  Report Type: Spontaneous
  Country: FR (occurrence: FR)
  Receive Date: 20190619
  Receipt Date: 20190619
  Transmission Date: 20190711
  Serious: Yes (Life-Threatening, Hospitalization)
  Sender: FDA-Public Use
  Company Number: FR-MYLANLABS-2019M1056313

PATIENT
  Age: 54 Year
  Sex: Female

DRUGS (6)
  1. KARDEGIC [Suspect]
     Active Substance: ASPIRIN DL-LYSINE
     Indication: ARTERIAL STENT INSERTION
     Dosage: 1 DF, DAILY
     Route: 048
     Dates: start: 20160411
  2. CLOPIDOGREL [Suspect]
     Active Substance: CLOPIDOGREL BISULFATE
     Indication: ARTERIAL STENT INSERTION
     Dosage: 1 DF, DAILY
     Route: 048
     Dates: start: 20160411
  3. SPIFEN [Suspect]
     Active Substance: IBUPROFEN
     Indication: TOOTHACHE
  4. IXPRIM [Suspect]
     Active Substance: ACETAMINOPHEN\TRAMADOL HYDROCHLORIDE
     Indication: DENTAL CARE
     Dosage: UNK
     Route: 065
  5. SIMVASTATINE [Concomitant]
     Active Substance: SIMVASTATIN
     Indication: ARTERIAL STENT INSERTION
     Dosage: 1 DF, DAILY
     Route: 048
     Dates: start: 20160411
  6. SPIFEN [Suspect]
     Active Substance: IBUPROFEN
     Indication: TOOTH ABSCESS
     Dosage: 2 DOSAGE FORM, QD
     Route: 048
     Dates: start: 20181120, end: 20181127

REACTIONS (3)
  - Melaena [Recovering/Resolving]
  - Fatigue [Recovering/Resolving]
  - Gastrointestinal haemorrhage [Recovering/Resolving]

NARRATIVE: CASE EVENT DATE: 20181128
